FAERS Safety Report 22177038 (Version 1)
Quarter: 2023Q2

REPORT INFORMATION
  Report Type: Spontaneous
  Country: US (occurrence: US)
  Receive Date: 20230405
  Receipt Date: 20230405
  Transmission Date: 20230721
  Serious: Yes (Hospitalization)
  Sender: FDA-Public Use
  Company Number: US-MYLANLABS-2023M1034900

PATIENT
  Age: 67 Year
  Sex: Male

DRUGS (5)
  1. TICAGRELOR [Interacting]
     Active Substance: TICAGRELOR
     Indication: Prophylaxis
     Dosage: 180 MILLIGRAM
     Route: 065
  2. TICAGRELOR [Interacting]
     Active Substance: TICAGRELOR
     Indication: Coronary artery disease
     Dosage: 180 MILLIGRAM (RELOADED)
     Route: 065
  3. PRIMIDONE [Interacting]
     Active Substance: PRIMIDONE
     Indication: Essential tremor
     Dosage: UNK
     Route: 065
  4. ASPIRIN [Suspect]
     Active Substance: ASPIRIN
     Indication: Prophylaxis
     Dosage: UNK, QD
     Route: 065
  5. ASPIRIN [Suspect]
     Active Substance: ASPIRIN
     Indication: Coronary artery disease

REACTIONS (2)
  - Drug ineffective [Unknown]
  - Drug interaction [Unknown]
